FAERS Safety Report 8465382-2 (Version None)
Quarter: 2012Q2

REPORT INFORMATION
  Report Type: 
  Country: None (occurrence: None)
  Receive Date: 20120626
  Receipt Date: 20120619
  Transmission Date: 20120825
  Serious: Yes (Hospitalization)
  Sender: FDA-Public Use
  Company Number: FR-PFIZER INC-2012137833

PATIENT
  Age: 77 Year
  Sex: Female

DRUGS (17)
  1. CODEINE [Concomitant]
     Indication: OSTEOARTHRITIS
  2. MOVIPREP [Concomitant]
  3. PLAVIX [Concomitant]
  4. CRESTOR [Concomitant]
  5. COLCHICINE [Concomitant]
  6. LYRICA [Concomitant]
  7. METEOSPASMYL [Concomitant]
  8. CELEBREX [Suspect]
     Indication: OSTEOARTHRITIS
     Dosage: UNK
     Route: 048
     Dates: start: 20111001, end: 20111017
  9. ALLOPURINOL [Concomitant]
  10. TRAMADOL HCL [Concomitant]
  11. CLONAZEPAM [Concomitant]
  12. IRBESARTAN AND HYDROCHLOROTHIAZIDE [Concomitant]
  13. PRAXILENE [Concomitant]
  14. SPASFON [Concomitant]
  15. ACETAMINOPHEN [Concomitant]
  16. VITAMIN D [Concomitant]
  17. OMEPRAZOLE [Concomitant]

REACTIONS (2)
  - CYTOLYTIC HEPATITIS [None]
  - CHOLESTASIS [None]
